FAERS Safety Report 9979494 (Version 1)
Quarter: 2014Q1

REPORT INFORMATION
  Report Type: Report from Study
  Country: US (occurrence: US)
  Receive Date: 20140306
  Receipt Date: 20140306
  Transmission Date: 20141002
  Serious: No
  Sender: FDA-Public Use
  Company Number: US-ABBVIE-13P-163-1173016-00

PATIENT
  Age: 49 Year
  Sex: Female

DRUGS (4)
  1. HUMIRA [Suspect]
     Indication: PSORIASIS
     Dates: start: 20130815
  2. HUMIRA [Suspect]
     Route: 058
     Dates: start: 20131115, end: 20131115
  3. HUMIRA [Suspect]
     Route: 058
  4. UNKNOWN MEDICATIONS [Concomitant]
     Indication: PRODUCT USED FOR UNKNOWN INDICATION

REACTIONS (4)
  - Lung disorder [Unknown]
  - Rash macular [Unknown]
  - Drug ineffective [Unknown]
  - Folliculitis [Unknown]
